FAERS Safety Report 6131501-6 (Version None)
Quarter: 2009Q1

REPORT INFORMATION
  Report Type: 
  Country: None (occurrence: None)
  Receive Date: 20090325
  Receipt Date: 20080922
  Transmission Date: 20090719
  Serious: Yes (Other)
  Sender: FDA-Public Use
  Company Number: US-BRISTOL-MYERS SQUIBB COMPANY-14322499

PATIENT
  Age: 62 Year
  Sex: Male

DRUGS (6)
  1. ERBITUX [Suspect]
     Indication: COLON CANCER
     Route: 042
     Dates: start: 20080209
  2. FOLINIC ACID [Concomitant]
     Indication: CHEMOTHERAPY
  3. FLUOROURACIL [Concomitant]
     Indication: CHEMOTHERAPY
  4. IRINOTECAN HCL [Concomitant]
     Indication: CHEMOTHERAPY
  5. BENADRYL [Concomitant]
     Indication: PREMEDICATION
     Route: 042
  6. DECADRON [Concomitant]
     Indication: PREMEDICATION
     Route: 042

REACTIONS (1)
  - URTICARIA [None]
